FAERS Safety Report 6771168-7 (Version None)
Quarter: 2010Q2

REPORT INFORMATION
  Report Type: 
  Country: None (occurrence: None)
  Receive Date: 20100616
  Receipt Date: 20100603
  Transmission Date: 20101027
  Serious: Yes (Other)
  Sender: FDA-Public Use
  Company Number: PHFR2010GB00490

PATIENT
  Sex: Male

DRUGS (2)
  1. CLOZARIL [Suspect]
     Indication: SCHIZOPHRENIA
     Dosage: UNK
     Route: 048
     Dates: start: 20090601
  2. CLOZARIL [Suspect]
     Dosage: 500MG DAILY

REACTIONS (3)
  - BLOOD CHOLESTEROL INCREASED [None]
  - FACIAL PALSY [None]
  - WEIGHT INCREASED [None]
